FAERS Safety Report 19726130 (Version 1)
Quarter: 2021Q3

REPORT INFORMATION
  Report Type: Spontaneous
  Country: HR (occurrence: HR)
  Receive Date: 20210819
  Receipt Date: 20210819
  Transmission Date: 20211014
  Serious: Yes (Hospitalization, Other)
  Sender: FDA-Public Use
  Company Number: HR-B.I. PHARMACEUTICALS,INC./RIDGEFIELD-2021-BI-121882

PATIENT
  Sex: Male

DRUGS (1)
  1. PRADAXA [Suspect]
     Active Substance: DABIGATRAN ETEXILATE MESYLATE
     Indication: ATRIAL FIBRILLATION

REACTIONS (6)
  - Asthenia [Recovering/Resolving]
  - Brain herniation [Recovering/Resolving]
  - Brain oedema [Recovering/Resolving]
  - Cerebral haemorrhage [Recovering/Resolving]
  - Somnolence [Recovering/Resolving]
  - Intraventricular haemorrhage [Recovering/Resolving]
